FAERS Safety Report 8000531-1 (Version None)
Quarter: 2011Q4

REPORT INFORMATION
  Report Type: 
  Country: None (occurrence: None)
  Receive Date: 20111222
  Receipt Date: 20111214
  Transmission Date: 20120403
  Serious: No
  Sender: FDA-Public Use
  Company Number: US-JNJFOC-20111207710

PATIENT
  Sex: Female
  Weight: 151.05 kg

DRUGS (6)
  1. LISINOPRIL [Concomitant]
     Indication: FLUID RETENTION
     Route: 048
     Dates: start: 20070101
  2. FENTANYL-100 [Suspect]
     Indication: BACK PAIN
     Route: 062
     Dates: start: 20111031
  3. LEVOTHYROXINE SODIUM [Concomitant]
     Indication: DIURETIC THERAPY
     Route: 048
     Dates: start: 19800101
  4. GLIPIZIDE [Concomitant]
     Indication: BLOOD GLUCOSE ABNORMAL
     Route: 048
     Dates: start: 20070101
  5. CHROMIUM PICOLINATE [Concomitant]
     Indication: BLOOD GLUCOSE ABNORMAL
     Route: 048
     Dates: start: 20050101
  6. HYDROCODONE [Concomitant]
     Indication: BREAKTHROUGH PAIN
     Route: 048
     Dates: start: 20090101

REACTIONS (3)
  - WRONG TECHNIQUE IN DRUG USAGE PROCESS [None]
  - WEIGHT DECREASED [None]
  - PRODUCT QUALITY ISSUE [None]
